FAERS Safety Report 21060845 (Version 2)
Quarter: 2022Q3

REPORT INFORMATION
  Report Type: Report from Study
  Country: MX (occurrence: MX)
  Receive Date: 20220709
  Receipt Date: 20220924
  Transmission Date: 20221026
  Serious: Yes (Death)
  Sender: FDA-Public Use
  Company Number: MX-NOVARTISPH-NVSC2022MX156326

PATIENT
  Age: 62 Year
  Sex: Female

DRUGS (1)
  1. ELTROMBOPAG OLAMINE [Suspect]
     Active Substance: ELTROMBOPAG OLAMINE
     Indication: Platelet count decreased
     Dosage: UNK UNK, QD (1 UNKNOWN STRENGTH)
     Route: 048
     Dates: start: 2020

REACTIONS (1)
  - Platelet count decreased [Fatal]

NARRATIVE: CASE EVENT DATE: 20210916
